FAERS Safety Report 8639160 (Version 2)
Quarter: 2013Q4

REPORT INFORMATION
  Report Type: Spontaneous
  Country: US (occurrence: US)
  Receive Date: 20120627
  Receipt Date: 20131001
  Transmission Date: 20140711
  Serious: No
  Sender: FDA-Public Use
  Company Number: US-AMGEN-USASP2012026372

PATIENT
  Age: 82 Year
  Sex: Female
  Weight: 79 kg

DRUGS (10)
  1. PROCRIT [Suspect]
     Indication: ANAEMIA
     Dosage: 5000 IU, Q2WK
     Route: 058
  2. LEVOTHYROXINE [Concomitant]
  3. TRICOR [Concomitant]
     Indication: BLOOD TRIGLYCERIDES INCREASED
  4. TRAMADOL [Concomitant]
     Indication: PAIN
  5. MULTIVITAMIN [Concomitant]
  6. STATIN [Concomitant]
     Indication: HYPERLIPIDAEMIA
  7. NEURONTIN [Concomitant]
     Indication: NEURALGIA
     Dosage: 100 MG, Q12H
     Route: 048
  8. DETROL [Concomitant]
     Indication: INCONTINENCE
  9. DIURETICS [Concomitant]
  10. ACE INHIBITORS [Concomitant]
     Indication: HYPERTENSION

REACTIONS (16)
  - Sneezing [Not Recovered/Not Resolved]
  - Restless legs syndrome [Not Recovered/Not Resolved]
  - Limb discomfort [Not Recovered/Not Resolved]
  - Breast pain [Unknown]
  - Breast discharge [Unknown]
  - Nipple pain [Unknown]
  - Breast inflammation [Unknown]
  - Breast swelling [Unknown]
  - Movement disorder [Unknown]
  - Joint stiffness [Unknown]
  - Pain in extremity [Not Recovered/Not Resolved]
  - Neuropathy peripheral [Not Recovered/Not Resolved]
  - Back pain [Unknown]
  - Insomnia [Not Recovered/Not Resolved]
  - Arthralgia [Unknown]
  - Myalgia [Unknown]
